FAERS Safety Report 5677865-9 (Version None)
Quarter: 2008Q1

REPORT INFORMATION
  Report Type: 
  Country: None (occurrence: None)
  Receive Date: 20080319
  Receipt Date: 20080314
  Transmission Date: 20080703
  Serious: Yes (Other)
  Sender: FDA-Public Use
  Company Number: CHPA2008US04703

PATIENT
  Age: 52 Year
  Sex: Male

DRUGS (1)
  1. NICOTINE [Suspect]
     Indication: SMOKING CESSATION THERAPY
     Dosage: 14 MG, ONCE/SINGLE, TRANSDERMAL
     Route: 062
     Dates: start: 20080310, end: 20080310

REACTIONS (2)
  - DIZZINESS [None]
  - HALLUCINATION [None]
